FAERS Safety Report 4397748-4 (Version None)
Quarter: 2004Q3

REPORT INFORMATION
  Report Type: 
  Country: None (occurrence: None)
  Receive Date: 20040713
  Receipt Date: 20040702
  Transmission Date: 20050211
  Serious: Yes (Other)
  Sender: FDA-Public Use
  Company Number: TPA2004A00818

PATIENT
  Age: 62 Year
  Sex: Male
  Weight: 74.8435 kg

DRUGS (19)
  1. ACTOS [Suspect]
     Indication: DIABETES MELLITUS NON-INSULIN-DEPENDENT
     Dosage: 30 MG, 2 IN 1 D, PER ORAL
     Route: 048
     Dates: start: 19990702
  2. NITROSTAT [Concomitant]
  3. NIASPAN [Concomitant]
  4. TOPROL-XL [Concomitant]
  5. SPIRONOLACTONE [Concomitant]
  6. ZETIA (EZETIMI8BE) [Concomitant]
  7. ALTACE [Concomitant]
  8. DIGOXIN [Concomitant]
  9. PLAVIX [Concomitant]
  10. GLYBURIDE [Concomitant]
  11. ZOCOR [Concomitant]
  12. RANITIDINE [Concomitant]
  13. PREVACID [Concomitant]
  14. LASIX [Concomitant]
  15. VITAMIN C (ASCORBIC ACID) [Concomitant]
  16. VITAMIN E [Concomitant]
  17. VITAMIN B (VITAMIN B) [Concomitant]
  18. MULTIVITAMIN (MULTIVITAMINS) [Concomitant]
  19. OMEGA-3 (OMEGA-3 TRIGLYCERIDES) [Concomitant]

REACTIONS (3)
  - DIABETES MELLITUS INADEQUATE CONTROL [None]
  - DRUG EFFECT DECREASED [None]
  - POLYP [None]
